FAERS Safety Report 12918260 (Version 1)
Quarter: 2016Q4

REPORT INFORMATION
  Report Type: Spontaneous
  Country: CN (occurrence: CN)
  Receive Date: 20161107
  Receipt Date: 20161107
  Transmission Date: 20170207
  Serious: Yes (Life-Threatening, Other)
  Sender: FDA-Public Use
  Company Number: CN-VALIDUS PHARMACEUTICALS LLC-CN-2016VAL002936

PATIENT
  Age: 66 Year
  Sex: Female

DRUGS (10)
  1. BENAZEPRIL HYDROCHLORIDE. [Suspect]
     Active Substance: BENAZEPRIL HYDROCHLORIDE
     Dosage: 2.5 MG, QD
     Route: 065
  2. IVABRADINE [Suspect]
     Active Substance: IVABRADINE
     Indication: PRODUCT USED FOR UNKNOWN INDICATION
     Dosage: 0.5 OT, QD
     Route: 065
     Dates: start: 20160220, end: 20160316
  3. WARFARIN [Concomitant]
     Active Substance: WARFARIN
     Indication: PRODUCT USED FOR UNKNOWN INDICATION
     Dosage: UNK
     Dates: end: 201102
  4. TORASEMIDE [Concomitant]
     Active Substance: TORSEMIDE
     Indication: PRODUCT USED FOR UNKNOWN INDICATION
     Dosage: 5 MG, QD
  5. BENAZEPRIL HYDROCHLORIDE. [Suspect]
     Active Substance: BENAZEPRIL HYDROCHLORIDE
     Indication: PRODUCT USED FOR UNKNOWN INDICATION
     Dosage: 5 MG, QD
     Route: 065
     Dates: start: 201004
  6. BENAZEPRIL HYDROCHLORIDE. [Suspect]
     Active Substance: BENAZEPRIL HYDROCHLORIDE
     Dosage: 10 MG, QD
     Route: 065
     Dates: start: 201105, end: 20160220
  7. BAYASPIRIN [Concomitant]
     Active Substance: ASPIRIN
     Indication: PRODUCT USED FOR UNKNOWN INDICATION
     Dosage: 100 MG, QD
     Dates: start: 201004
  8. SPIRONOLACTONE. [Concomitant]
     Active Substance: SPIRONOLACTONE
     Indication: PRODUCT USED FOR UNKNOWN INDICATION
     Dosage: 20 MG, BID
     Dates: start: 201004
  9. FUROSEMIDE. [Concomitant]
     Active Substance: FUROSEMIDE
     Indication: PRODUCT USED FOR UNKNOWN INDICATION
     Dosage: 20 MG, UNK
  10. BISOPROLOL                         /01166101/ [Concomitant]
     Indication: PRODUCT USED FOR UNKNOWN INDICATION
     Dosage: 10 MG, QD
     Dates: start: 201004

REACTIONS (30)
  - Ventricular tachycardia [Unknown]
  - Wheezing [Unknown]
  - Fatigue [Unknown]
  - Depressed level of consciousness [Recovering/Resolving]
  - Arteriosclerosis coronary artery [Unknown]
  - Asthenia [Recovered/Resolved]
  - Dyspnoea [Not Recovered/Not Resolved]
  - Dilatation ventricular [Unknown]
  - Urine output decreased [Unknown]
  - Feeling abnormal [Recovering/Resolving]
  - N-terminal prohormone brain natriuretic peptide increased [Not Recovered/Not Resolved]
  - Cardiomegaly [Unknown]
  - Weight decreased [Unknown]
  - Tricuspid valve incompetence [Unknown]
  - Gingival bleeding [Unknown]
  - Pyrexia [Recovered/Resolved]
  - Insomnia [Recovering/Resolving]
  - Mitral valve incompetence [Unknown]
  - Blood pressure decreased [Not Recovered/Not Resolved]
  - Ventricular extrasystoles [Unknown]
  - Ejection fraction decreased [Not Recovered/Not Resolved]
  - Vision blurred [Unknown]
  - Pallor [Recovering/Resolving]
  - Hyperhidrosis [Recovering/Resolving]
  - Haematuria [Unknown]
  - Pulmonary hypertension [Not Recovered/Not Resolved]
  - Cardiac failure chronic [Not Recovered/Not Resolved]
  - Dyspnoea exertional [Unknown]
  - Decreased appetite [Recovering/Resolving]
  - Diarrhoea [Unknown]

NARRATIVE: CASE EVENT DATE: 201102
